FAERS Safety Report 24223955 (Version 1)
Quarter: 2024Q3

REPORT INFORMATION
  Report Type: Spontaneous
  Country: US (occurrence: None)
  Receive Date: 20240817
  Receipt Date: 20240817
  Transmission Date: 20241016
  Serious: Yes (Disabling)
  Sender: Public
  Company Number: None

PATIENT
  Age: 70 Year
  Sex: Female
  Weight: 83.25 kg

DRUGS (4)
  1. VYEPTI [Suspect]
     Active Substance: EPTINEZUMAB\EPTINEZUMAB-JJMR
     Indication: Migraine prophylaxis
     Dates: start: 20240401, end: 20240401
  2. ATENOLOL [Concomitant]
     Active Substance: ATENOLOL
  3. ZETIA [Concomitant]
     Active Substance: EZETIMIBE
  4. PROPRANOLOL HYDROCHLORIDE [Concomitant]
     Active Substance: PROPRANOLOL HYDROCHLORIDE

REACTIONS (4)
  - Vertigo [None]
  - Nausea [None]
  - Pain in extremity [None]
  - Rash [None]

NARRATIVE: CASE EVENT DATE: 20240401
